FAERS Safety Report 25653175 (Version 1)
Quarter: 2025Q3

REPORT INFORMATION
  Report Type: Spontaneous
  Country: US (occurrence: US)
  Receive Date: 20250807
  Receipt Date: 20250807
  Transmission Date: 20251020
  Serious: No
  Sender: MANNKIND
  Company Number: US-MANNKIND CORP-2025MK000043

PATIENT
  Age: 62 Year
  Sex: Male

DRUGS (1)
  1. AFREZZA [Suspect]
     Active Substance: INSULIN HUMAN
     Indication: Type 2 diabetes mellitus

REACTIONS (2)
  - Blood glucose decreased [Unknown]
  - Product residue present [Unknown]

NARRATIVE: CASE EVENT DATE: 20250626
